FAERS Safety Report 7111177-1 (Version None)
Quarter: 2010Q4

REPORT INFORMATION
  Report Type: 
  Country: None (occurrence: None)
  Receive Date: 20101103
  Receipt Date: 20101027
  Transmission Date: 20110411
  Serious: Yes (Hospitalization, Other)
  Sender: FDA-Public Use
  Company Number: WAES 0906USA00496

PATIENT
  Age: 75 Year
  Sex: Female

DRUGS (10)
  1. FOSAMAX [Suspect]
  2. BLINDED THERAPY UNK [Suspect]
     Indication: CEREBROVASCULAR ACCIDENT
     Dosage: PO
     Route: 048
     Dates: start: 20080808, end: 20080813
  3. METHOTREXATE [Suspect]
  4. REMICADE [Suspect]
  5. PREDNISONE [Suspect]
  6. ASPIRIN [Suspect]
  7. EQUATE IBUPROFEN [Concomitant]
  8. FOSAMAX [Concomitant]
  9. PREVACID [Concomitant]
  10. TREXALL [Concomitant]

REACTIONS (9)
  - ABDOMINAL PAIN [None]
  - ANAEMIA [None]
  - CONTUSION [None]
  - DIARRHOEA [None]
  - FATIGUE [None]
  - GASTROINTESTINAL HAEMORRHAGE [None]
  - IATROGENIC INJURY [None]
  - INSOMNIA [None]
  - NAUSEA [None]
